FAERS Safety Report 4391475-5 (Version None)
Quarter: 2004Q3

REPORT INFORMATION
  Report Type: 
  Country: None (occurrence: None)
  Receive Date: 20040707
  Receipt Date: 20040506
  Transmission Date: 20050211
  Serious: Yes (Death, Life-Threatening, Hospitalization)
  Sender: FDA-Public Use
  Company Number: DE-GLAXOSMITHKLINE-D0043729A

PATIENT
  Age: 75 Year
  Sex: Female
  Weight: 65 kg

DRUGS (1)
  1. HYCAMTIN [Suspect]
     Dosage: 1.5MGM2 PER DAY
     Route: 042
     Dates: start: 20040429, end: 20040503

REACTIONS (15)
  - ACCIDENTAL OVERDOSE [None]
  - BLOOD CREATININE INCREASED [None]
  - DISEASE PROGRESSION [None]
  - DRUG ERUPTION [None]
  - ILEUS [None]
  - LEUKOPENIA [None]
  - METASTATIC NEOPLASM [None]
  - MUCOSAL INFLAMMATION [None]
  - ORAL CANDIDIASIS [None]
  - OVARIAN CANCER [None]
  - PNEUMONIA [None]
  - PYREXIA [None]
  - RASH [None]
  - RASH PRURITIC [None]
  - THROMBOCYTOPENIA [None]
